FAERS Safety Report 18266599 (Version 2)
Quarter: 2020Q3

REPORT INFORMATION
  Report Type: Other
  Country: JP (occurrence: JP)
  Receive Date: 20200915
  Receipt Date: 20200927
  Transmission Date: 20201103
  Serious: Yes (Other)
  Sender: FDA-Public Use
  Company Number: JP-ROCHE-2676276

PATIENT
  Age: 49 Year
  Sex: Male

DRUGS (4)
  1. PREDNISOLONE. [Concomitant]
     Active Substance: PREDNISOLONE
     Indication: STILL^S DISEASE
     Route: 065
     Dates: start: 2008
  2. CICLOSPORIN [Concomitant]
     Active Substance: CYCLOSPORINE
     Indication: STILL^S DISEASE
     Route: 065
  3. ACTEMRA [Suspect]
     Active Substance: TOCILIZUMAB
     Indication: STILL^S DISEASE
     Route: 058
     Dates: start: 2015
  4. ACTEMRA [Suspect]
     Active Substance: TOCILIZUMAB
     Route: 058
     Dates: start: 2017

REACTIONS (3)
  - Off label use [Unknown]
  - Crohn^s disease [Recovering/Resolving]
  - Intentional product use issue [Unknown]
